FAERS Safety Report 16085255 (Version 1)
Quarter: 2019Q1

REPORT INFORMATION
  Report Type: Spontaneous
  Country: CN (occurrence: CN)
  Receive Date: 20190318
  Receipt Date: 20190318
  Transmission Date: 20190418
  Serious: Yes (Life-Threatening, Hospitalization)
  Sender: FDA-Public Use
  Company Number: CN-BAUSCH-BL-2019-007152

PATIENT
  Age: 88 Year
  Sex: Female
  Weight: 78 kg

DRUGS (1)
  1. TIMOLOL MALEATE EYE DROPS [Suspect]
     Active Substance: TIMOLOL MALEATE
     Indication: GLAUCOMA
     Route: 047
     Dates: start: 20190223, end: 20190223

REACTIONS (9)
  - Blood pressure increased [Recovering/Resolving]
  - Eye pain [Recovering/Resolving]
  - Chest discomfort [Recovering/Resolving]
  - Sinus bradycardia [Recovering/Resolving]
  - Tachypnoea [Recovering/Resolving]
  - Gait disturbance [Recovering/Resolving]
  - Dysstasia [Recovering/Resolving]
  - Dyspnoea [Recovering/Resolving]
  - Lacrimation increased [Recovering/Resolving]

NARRATIVE: CASE EVENT DATE: 20190223
